FAERS Safety Report 19597900 (Version 1)
Quarter: 2021Q3

REPORT INFORMATION
  Report Type: Spontaneous
  Country: US (occurrence: US)
  Receive Date: 20210722
  Receipt Date: 20210722
  Transmission Date: 20211014
  Serious: Yes (Other)
  Sender: FDA-Public Use
  Company Number: None

PATIENT
  Age: 37 Year
  Sex: Male
  Weight: 74.25 kg

DRUGS (4)
  1. OMEPRAZOLE. [Concomitant]
     Active Substance: OMEPRAZOLE
  2. MULTIVITAMIN [Concomitant]
     Active Substance: VITAMINS
  3. ALLEGRA?D [Concomitant]
     Active Substance: FEXOFENADINE HYDROCHLORIDE\PSEUDOEPHEDRINE HYDROCHLORIDE
  4. NITROGLYCERIN 0.125% OINTMENT [Suspect]
     Active Substance: NITROGLYCERIN
     Indication: ANAL FISSURE
     Route: 054
     Dates: start: 20210619

REACTIONS (7)
  - Throat irritation [None]
  - Musculoskeletal stiffness [None]
  - Muscle spasms [None]
  - Throat tightness [None]
  - Arthralgia [None]
  - Trismus [None]
  - Hypokinesia [None]

NARRATIVE: CASE EVENT DATE: 20210619
